FAERS Safety Report 7278340-0 (Version None)
Quarter: 2011Q1

REPORT INFORMATION
  Report Type: 
  Country: None (occurrence: None)
  Receive Date: 20110207
  Receipt Date: 20110127
  Transmission Date: 20110831
  Serious: Yes (Hospitalization)
  Sender: FDA-Public Use
  Company Number: CA-ASTRAZENECA-2010SE58155

PATIENT
  Age: 79 Year
  Sex: Female

DRUGS (3)
  1. CENTRUM VITAMINS [Concomitant]
     Dosage: OCCASIONNALLY
     Route: 048
     Dates: start: 20080101
  2. NEXIUM [Suspect]
     Indication: GASTROOESOPHAGEAL REFLUX DISEASE
     Route: 048
     Dates: start: 20070101
  3. ADVIL [Concomitant]
     Indication: OSTEOARTHRITIS
     Dosage: OCCASIONNALLY

REACTIONS (5)
  - ANAEMIA [None]
  - GAIT DISTURBANCE [None]
  - DISABILITY [None]
  - FALL [None]
  - DIARRHOEA [None]
